FAERS Safety Report 6915585-0 (Version None)
Quarter: 2010Q3

REPORT INFORMATION
  Report Type: 
  Country: None (occurrence: None)
  Receive Date: 20100804
  Receipt Date: 20100724
  Transmission Date: 20110219
  Serious: Yes (Hospitalization, Other)
  Sender: FDA-Public Use
  Company Number: 2010AP001528

PATIENT
  Age: 59 Year
  Sex: Male

DRUGS (2)
  1. CLARITHROMYCIN [Suspect]
     Indication: INFECTION
     Dosage: 500 MG; QD
  2. ATORVASTATIN CALCIUM [Suspect]
     Dosage: 40 MG

REACTIONS (7)
  - ATAXIA [None]
  - BLOOD CREATININE INCREASED [None]
  - DRUG INTERACTION [None]
  - LUNG INFECTION [None]
  - MONONEUROPATHY [None]
  - MYOCARDIAL INFARCTION [None]
  - RHABDOMYOLYSIS [None]
